FAERS Safety Report 8373501-1 (Version None)
Quarter: 2012Q2

REPORT INFORMATION
  Report Type: 
  Country: None (occurrence: None)
  Receive Date: 20120521
  Receipt Date: 20110809
  Transmission Date: 20120825
  Serious: Yes (Other)
  Sender: FDA-Public Use
  Company Number: US-TEVA-2011003594

PATIENT
  Sex: Female
  Weight: 57.204 kg

DRUGS (8)
  1. CELEBREX [Concomitant]
  2. PREDNISONE [Suspect]
     Indication: LYMPHOMA
  3. GALAPENTIN [Concomitant]
  4. TREANDA [Suspect]
     Indication: LYMPHOMA
     Route: 042
     Dates: start: 20110628, end: 20110628
  5. RITUXIMAB [Suspect]
     Indication: LYMPHOMA
  6. HYDROCHLOROTHIAZIDE [Concomitant]
  7. LEVOXYL [Concomitant]
  8. OMEPRAZOLE [Concomitant]

REACTIONS (1)
  - RASH MACULAR [None]
